FAERS Safety Report 6249737-2 (Version None)
Quarter: 2009Q2

REPORT INFORMATION
  Report Type: 
  Country: None (occurrence: None)
  Receive Date: 20090625
  Receipt Date: 20090625
  Transmission Date: 20091009
  Serious: Yes (Other)
  Sender: FDA-Public Use
  Company Number: None

PATIENT
  Age: 36 Year
  Sex: Female
  Weight: 72.5755 kg

DRUGS (1)
  1. LYRICA [Suspect]
     Indication: FIBROMYALGIA
     Dosage: 150MG BID PO
     Route: 048
     Dates: start: 20081214, end: 20090415

REACTIONS (4)
  - APHASIA [None]
  - DYSPNOEA [None]
  - HYPOAESTHESIA ORAL [None]
  - WEIGHT INCREASED [None]
